FAERS Safety Report 4864843-2 (Version None)
Quarter: 2005Q4

REPORT INFORMATION
  Report Type: 
  Country: None (occurrence: None)
  Receive Date: 20051222
  Receipt Date: 20050829
  Transmission Date: 20060501
  Serious: Yes (Hospitalization, Disabling)
  Sender: FDA-Public Use
  Company Number: US-MERCK-0508USA05107

PATIENT
  Age: 48 Year
  Sex: Male
  Weight: 105 kg

DRUGS (4)
  1. VIOXX [Suspect]
     Indication: ARTHRALGIA
     Route: 048
     Dates: start: 20010401, end: 20040603
  2. TARKA [Concomitant]
     Indication: HYPERTENSION
     Route: 065
     Dates: start: 20000101
  3. ZETIA [Concomitant]
     Indication: BLOOD CHOLESTEROL INCREASED
     Route: 065
     Dates: start: 20000101, end: 20010101
  4. CELEBREX [Concomitant]
     Indication: ARTHRALGIA
     Route: 065
     Dates: start: 20000101, end: 20010101

REACTIONS (12)
  - ATRIAL FIBRILLATION [None]
  - CARDIAC DISORDER [None]
  - CEREBRAL THROMBOSIS [None]
  - CEREBROVASCULAR ACCIDENT [None]
  - CHILLS [None]
  - DEEP VEIN THROMBOSIS [None]
  - DISLOCATION OF VERTEBRA [None]
  - HYPERCOAGULATION [None]
  - NIGHT SWEATS [None]
  - PULMONARY EMBOLISM [None]
  - RENAL ARTERY STENOSIS [None]
  - SKIN LACERATION [None]
